FAERS Safety Report 9026591 (Version 1)
Quarter: 2013Q1

REPORT INFORMATION
  Report Type: Spontaneous
  Country: US (occurrence: None)
  Receive Date: 20130107
  Receipt Date: 20130107
  Transmission Date: 20140127
  Serious: Yes (Hospitalization, Other)
  Sender: FDA-Public Use
  Company Number: ACO_33581_2012

PATIENT
  Age: 64 Year
  Sex: Female

DRUGS (2)
  1. AMPYRA (DALFAMPRIDINE) TABLET, 10 MG [Suspect]
     Indication: PRODUCT USED FOR UNKNOWN INDICATION
     Route: 048
     Dates: start: 201008
  2. REBIF (INTERFERON BETA-1A) [Concomitant]

REACTIONS (18)
  - Acute respiratory failure [None]
  - Chronic respiratory failure [None]
  - Septic shock [None]
  - Leukocytosis [None]
  - Lactic acidosis [None]
  - Pneumonia [None]
  - Hyperlipidaemia [None]
  - Pneumonitis [None]
  - Renal failure [None]
  - Cardiac disorder [None]
  - Systemic lupus erythematosus [None]
  - Multiple sclerosis [None]
  - Urinary tract infection [None]
  - Sjogren^s syndrome [None]
  - Dry eye [None]
  - Pneumonia [None]
  - Myocardial infarction [None]
  - Tremor [None]
